FAERS Safety Report 15369891 (Version 2)
Quarter: 2018Q4

REPORT INFORMATION
  Report Type: Spontaneous
  Country: US (occurrence: US)
  Receive Date: 20180911
  Receipt Date: 20181015
  Transmission Date: 20190204
  Serious: Yes (Hospitalization, Other)
  Sender: FDA-Public Use
  Company Number: US-AUROBINDO-AUR-APL-2018-044078

PATIENT
  Age: 16 Year
  Sex: Female

DRUGS (11)
  1. PALIPERIDONE. [Concomitant]
     Active Substance: PALIPERIDONE
     Indication: MOOD ALTERED
  2. PERPHENAZINE. [Concomitant]
     Active Substance: PERPHENAZINE
     Indication: ABNORMAL BEHAVIOUR
     Dosage: 10 MG IN THE MORNING; 8 MG AT NIGHT
  3. ARIPIPRAZOLE. [Suspect]
     Active Substance: ARIPIPRAZOLE
     Indication: HYPERPROLACTINAEMIA
     Dosage: 2.5 MILLIGRAM, DAILY
     Route: 065
  4. ARIPIPRAZOLE. [Suspect]
     Active Substance: ARIPIPRAZOLE
     Dosage: 30 MILLIGRAM
     Route: 065
  5. RISPERIDONE. [Suspect]
     Active Substance: RISPERIDONE
     Indication: AGGRESSION
     Dosage: UNK
     Route: 065
  6. LAMOTRIGINE. [Suspect]
     Active Substance: LAMOTRIGINE
     Indication: PSYCHOTIC SYMPTOM
     Dosage: 25 MILLIGRAM
     Route: 065
  7. ARIPIPRAZOLE. [Suspect]
     Active Substance: ARIPIPRAZOLE
     Dosage: 5 MILLIGRAM
     Route: 065
  8. RISPERIDONE. [Suspect]
     Active Substance: RISPERIDONE
     Indication: MOOD ALTERED
     Dosage: 4 MILLIGRAM, DAILY
     Route: 065
  9. RISPERIDONE. [Suspect]
     Active Substance: RISPERIDONE
     Dosage: ()
  10. RISPERIDONE. [Suspect]
     Active Substance: RISPERIDONE
     Dosage: INCREASED DOSE
  11. PERPHENAZINE. [Concomitant]
     Active Substance: PERPHENAZINE
     Dosage: 10 MG IN THE MORNING; 8 MG AT NIGHT

REACTIONS (6)
  - Hyperprolactinaemia [Unknown]
  - Delusion [Unknown]
  - Breast discharge [Unknown]
  - Galactorrhoea [Recovered/Resolved]
  - Hallucination, auditory [Unknown]
  - Agitation [Unknown]
